FAERS Safety Report 24145278 (Version 2)
Quarter: 2024Q3

REPORT INFORMATION
  Report Type: Spontaneous
  Country: ID (occurrence: ID)
  Receive Date: 20240729
  Receipt Date: 20240802
  Transmission Date: 20241017
  Serious: Yes (Other)
  Sender: SANOFI AVENTIS
  Company Number: None

PATIENT
  Age: 42 Year
  Sex: Male

DRUGS (22)
  1. RIFAMPIN [Interacting]
     Active Substance: RIFAMPIN
     Indication: Cutaneous tuberculosis
     Dosage: 600 MG
     Dates: start: 2021
  2. RIFAMPIN [Interacting]
     Active Substance: RIFAMPIN
     Indication: Pulmonary tuberculosis
     Dosage: 450 MG, QD  (ANTI-TB THERAPY OF RIFAMPICIN ADJUSTED)
  3. METHYLPREDNISOLONE [Interacting]
     Active Substance: METHYLPREDNISOLONE
     Indication: Immunosuppressant drug therapy
     Dosage: 125 MG
     Route: 042
     Dates: start: 2020, end: 2020
  4. METHYLPREDNISOLONE [Interacting]
     Active Substance: METHYLPREDNISOLONE
     Dosage: 16 MG, BID
     Dates: start: 2020, end: 2020
  5. METHYLPREDNISOLONE [Interacting]
     Active Substance: METHYLPREDNISOLONE
     Dosage: 250 MG, BID
     Route: 042
     Dates: start: 2020, end: 2020
  6. METHYLPREDNISOLONE [Interacting]
     Active Substance: METHYLPREDNISOLONE
     Dosage: 32 MG, QD
     Dates: start: 2021
  7. METHYLPREDNISOLONE [Interacting]
     Active Substance: METHYLPREDNISOLONE
     Dosage: 4 MG, QD
     Dates: start: 2021
  8. METHYLPREDNISOLONE [Interacting]
     Active Substance: METHYLPREDNISOLONE
     Dosage: MAINTAINED
     Dates: start: 2020, end: 2020
  9. PYRAZINAMIDE [Interacting]
     Active Substance: PYRAZINAMIDE
     Indication: Cutaneous tuberculosis
     Dosage: 1500 MG
     Dates: start: 2021
  10. PYRAZINAMIDE [Interacting]
     Active Substance: PYRAZINAMIDE
     Indication: Pulmonary tuberculosis
  11. ISONIAZID [Interacting]
     Active Substance: ISONIAZID
     Indication: Cutaneous tuberculosis
     Dosage: 300 MG
     Dates: start: 2021
  12. ISONIAZID [Interacting]
     Active Substance: ISONIAZID
     Indication: Pulmonary tuberculosis
  13. ETHAMBUTOL [Interacting]
     Active Substance: ETHAMBUTOL HYDROCHLORIDE
     Indication: Cutaneous tuberculosis
     Dosage: 750 MG
     Dates: start: 2021
  14. ETHAMBUTOL [Interacting]
     Active Substance: ETHAMBUTOL HYDROCHLORIDE
     Indication: Pulmonary tuberculosis
  15. TACROLIMUS [Interacting]
     Active Substance: TACROLIMUS
     Indication: Immunosuppressant drug therapy
     Dosage: 0.06 MG/KG
     Dates: start: 2020, end: 2020
  16. TACROLIMUS [Interacting]
     Active Substance: TACROLIMUS
     Dosage: 2 MG, BID
     Dates: start: 2020, end: 2020
  17. TACROLIMUS [Interacting]
     Active Substance: TACROLIMUS
     Dosage: 2 MG, QD  (1 MG-0 MG-1 MG)
     Dates: start: 2021
  18. TACROLIMUS [Interacting]
     Active Substance: TACROLIMUS
     Dosage: MAINTAINED
     Dates: start: 2020, end: 2020
  19. MYCOPHENOLIC ACID [Interacting]
     Active Substance: MYCOPHENOLIC ACID
     Indication: Immunosuppressant drug therapy
     Dosage: 720 MG (INDUCTION)
     Dates: start: 2020, end: 2020
  20. MYCOPHENOLIC ACID [Interacting]
     Active Substance: MYCOPHENOLIC ACID
     Dosage: 360 MG, BID
  21. MYCOPHENOLIC ACID [Interacting]
     Active Substance: MYCOPHENOLIC ACID
     Dosage: 720 MG, BID
     Dates: start: 2020
  22. MYCOPHENOLIC ACID [Interacting]
     Active Substance: MYCOPHENOLIC ACID
     Dosage: MAINTAINED
     Dates: start: 2020, end: 2020

REACTIONS (3)
  - Renal transplant failure [Unknown]
  - Immunosuppressant drug level decreased [Unknown]
  - Drug interaction [Unknown]

NARRATIVE: CASE EVENT DATE: 20210101
